FAERS Safety Report 23954239 (Version 1)
Quarter: 2024Q2

REPORT INFORMATION
  Report Type: Spontaneous
  Country: IT (occurrence: IT)
  Receive Date: 20240609
  Receipt Date: 20240609
  Transmission Date: 20240715
  Serious: Yes (Hospitalization)
  Sender: FDA-Public Use
  Company Number: IT-NOVITIUMPHARMA-2024ITNVP00993

PATIENT
  Age: 43 Year
  Sex: Male

DRUGS (4)
  1. PREDNISONE [Suspect]
     Active Substance: PREDNISONE
     Indication: Anti-melanoma differentiation-associated protein 5 antibody positive
  2. PREDNISONE [Suspect]
     Active Substance: PREDNISONE
     Indication: Interstitial lung disease
  3. METHOTREXATE [Concomitant]
     Active Substance: METHOTREXATE
     Indication: Anti-melanoma differentiation-associated protein 5 antibody positive
  4. METHOTREXATE [Concomitant]
     Active Substance: METHOTREXATE
     Indication: Interstitial lung disease

REACTIONS (1)
  - Drug ineffective [Unknown]
